FAERS Safety Report 11982428 (Version 1)
Quarter: 2016Q1

REPORT INFORMATION
  Report Type: Spontaneous
  Country: VN (occurrence: VN)
  Receive Date: 20160201
  Receipt Date: 20160201
  Transmission Date: 20160526
  Serious: Yes (Other)
  Sender: FDA-Public Use
  Company Number: VN-CIPLA LTD.-2016VN00308

PATIENT

DRUGS (6)
  1. LEVOFLOXACIN. [Suspect]
     Active Substance: LEVOFLOXACIN
     Indication: MENINGITIS TUBERCULOUS
     Dosage: 20 MG/KG, QD
     Route: 065
  2. PYRAZINAMIDE. [Suspect]
     Active Substance: PYRAZINAMIDE
     Indication: MENINGITIS TUBERCULOUS
     Dosage: 25 MG PER KILOGRAM PER DAY; MAXIMUM, 2 G PER DAY
     Route: 048
  3. DEXAMETHASONE. [Suspect]
     Active Substance: DEXAMETHASONE
     Indication: MENINGITIS TUBERCULOUS
     Dosage: FOR THE FIRST 6 TO 8 WEEKS OF TREATMENT
     Route: 065
  4. ETHAMBUTOL [Suspect]
     Active Substance: ETHAMBUTOL HYDROCHLORIDE
     Indication: MENINGITIS TUBERCULOUS
     Dosage: 20 MG PER KILOGRAM PER DAY; MAXIMUM, 1.2 G PER DAY
     Route: 048
  5. ISONIAZID. [Suspect]
     Active Substance: ISONIAZID
     Indication: MENINGITIS TUBERCULOUS
     Dosage: 5 MG PER KILOGRAM PER DAY; MAXIMUM, 300 MG PER DAY
     Route: 048
  6. RIFAMPIN. [Suspect]
     Active Substance: RIFAMPIN
     Indication: MENINGITIS TUBERCULOUS
     Dosage: 15 MG PER KILOGRAM PER DAY, 9-MONTH REGIMEN WITH THE ADDITION FOR
     Route: 048

REACTIONS (1)
  - Respiratory disorder [Unknown]
